FAERS Safety Report 16650102 (Version 2)
Quarter: 2019Q3

REPORT INFORMATION
  Report Type: Spontaneous
  Country: US (occurrence: US)
  Receive Date: 20190731
  Receipt Date: 20190827
  Transmission Date: 20191004
  Serious: Yes (Hospitalization)
  Sender: FDA-Public Use
  Company Number: US-UNITED THERAPEUTICS-UNT-2019-012540

PATIENT
  Age: 47 Year
  Sex: Female
  Weight: 145.13 kg

DRUGS (2)
  1. REMODULIN [Suspect]
     Active Substance: TREPROSTINIL
     Dosage: 0.0198 ?G/KG, CONTINUING
     Route: 041
  2. REMODULIN [Suspect]
     Active Substance: TREPROSTINIL
     Indication: PULMONARY ARTERIAL HYPERTENSION
     Dosage: 0.007 ?G/KG, CONTINUING
     Route: 041
     Dates: start: 20190626

REACTIONS (8)
  - Injection site bruising [Unknown]
  - Pyrexia [Unknown]
  - Nausea [Recovered/Resolved]
  - Dermatitis contact [Not Recovered/Not Resolved]
  - Vomiting [Recovered/Resolved]
  - Dyspnoea [Unknown]
  - Injection site cellulitis [Unknown]
  - Chills [Unknown]

NARRATIVE: CASE EVENT DATE: 2019
